FAERS Safety Report 15930729 (Version 1)
Quarter: 2019Q1

REPORT INFORMATION
  Report Type: Spontaneous
  Country: US (occurrence: US)
  Receive Date: 20190206
  Receipt Date: 20190206
  Transmission Date: 20190417
  Serious: Yes (Death)
  Sender: FDA-Public Use
  Company Number: None

PATIENT
  Age: 75 Year
  Sex: Male
  Weight: 123.75 kg

DRUGS (1)
  1. ELIQUIS [Suspect]
     Active Substance: APIXABAN
     Indication: ATRIAL FIBRILLATION
     Dosage: ?          OTHER FREQUENCY:UNKNOWN;?
     Route: 048
     Dates: start: 20180101, end: 20190130

REACTIONS (7)
  - Unresponsive to stimuli [None]
  - Brain compression [None]
  - Vomiting [None]
  - Subdural haematoma [None]
  - Brain injury [None]
  - Seizure [None]
  - Cerebral haemorrhage [None]

NARRATIVE: CASE EVENT DATE: 20190130
